FAERS Safety Report 11148372 (Version 1)
Quarter: 2015Q2

REPORT INFORMATION
  Report Type: Spontaneous
  Country: TH (occurrence: None)
  Receive Date: 20150527
  Receipt Date: 20150527
  Transmission Date: 20150821
  Serious: Yes (Death, Hospitalization)
  Sender: FDA-Public Use
  Company Number: FK201502394

PATIENT
  Age: 55 Year
  Sex: Female

DRUGS (5)
  1. VINCRISTINE (VINCRISTINE) (VINCRISTINE) [Suspect]
     Active Substance: VINCRISTINE
     Indication: DIFFUSE LARGE B-CELL LYMPHOMA
     Dosage: (NOT OTHERWISE SPECIFIED)
     Route: 042
  2. PREDNISOLONE (PREDNISOLONE) (PREDNISOLONE) [Suspect]
     Active Substance: PREDNISOLONE
     Indication: DIFFUSE LARGE B-CELL LYMPHOMA
     Route: 048
  3. IMIPENEM [Concomitant]
     Active Substance: IMIPENEM
  4. DOXORUBICIN (MANUFACTURER UNKNOWN) (DOXORUBICIN HYDROCHLORIDE) (DOXORUBICIN HYDROCHLORIDE) [Suspect]
     Active Substance: DOXORUBICIN
     Indication: DIFFUSE LARGE B-CELL LYMPHOMA
     Dosage: (NOT OTHERWISE SPECIFIED)
     Route: 042
  5. CYCLOPHOSPHAMIDE (MANUFACTURER UNKNOWN) (CYCLOPHOSPHAMIDE) (CYCLOPHOSPHAMIDE) [Suspect]
     Active Substance: CYCLOPHOSPHAMIDE
     Indication: DIFFUSE LARGE B-CELL LYMPHOMA
     Dosage: (NOT OTHERWISE SPECIFIED)
     Route: 042

REACTIONS (5)
  - Neutropenia [None]
  - Colitis [None]
  - Escherichia test positive [None]
  - Enterococcus test positive [None]
  - Candida infection [None]
